FAERS Safety Report 10045069 (Version 1)
Quarter: 2014Q1

REPORT INFORMATION
  Report Type: Spontaneous
  Country: DE (occurrence: DE)
  Receive Date: 20140328
  Receipt Date: 20140328
  Transmission Date: 20141002
  Serious: Yes (Other)
  Sender: FDA-Public Use
  Company Number: DE-GE HEALTHCARE MEDICAL DIAGNOSTICS-VISP-PR-1403S-0137

PATIENT
  Age: 56 Year
  Sex: Male
  Weight: 84 kg

DRUGS (2)
  1. VISIPAQUE [Suspect]
     Indication: PULMONARY EMBOLISM
     Route: 042
     Dates: start: 20140311, end: 20140311
  2. VISIPAQUE [Suspect]
     Indication: DIAGNOSTIC PROCEDURE

REACTIONS (3)
  - Urticaria papular [Recovered/Resolved]
  - Flushing [Recovered/Resolved]
  - Erythema [Recovered/Resolved]
